FAERS Safety Report 7403519-4 (Version None)
Quarter: 2011Q1

REPORT INFORMATION
  Report Type: 
  Country: None (occurrence: None)
  Receive Date: 20110330
  Receipt Date: 20110330
  Transmission Date: 20110831
  Serious: Yes (Hospitalization)
  Sender: FDA-Public Use
  Company Number: 2011MA002446

PATIENT
  Age: 24 Year
  Sex: Male

DRUGS (4)
  1. ACYCLOVIR [Suspect]
     Indication: HERPES SIMPLEX
     Dosage: 30 MG/KG
  2. GANCICLOVIR [Concomitant]
  3. FOSCARNET [Concomitant]
  4. FAMCICLOVIR [Concomitant]

REACTIONS (4)
  - HYPONATRAEMIA [None]
  - NEUTROPENIA [None]
  - MULTIPLE-DRUG RESISTANCE [None]
  - RENAL FAILURE [None]
